FAERS Safety Report 8773174 (Version 1)
Quarter: 2012Q4

REPORT INFORMATION
  Report Type: 
  Country: IT (occurrence: IT)
  Receive Date: 20120907
  Receipt Date: 20120907
  Transmission Date: 20130627
  Serious: Yes (Hospitalization)
  Sender: FDA-Public Use
  Company Number: IT-BRISTOL-MYERS SQUIBB COMPANY-16913055

PATIENT
  Age: 75 Year
  Sex: Female

DRUGS (5)
  1. COUMADIN [Suspect]
     Indication: ATRIAL FIBRILLATION
     Route: 048
     Dates: start: 20120101, end: 20120727
  2. AUGMENTIN [Interacting]
     Indication: INFLAMMATION
     Dosage: 2 df= 875mg/125mg. tabs
     Route: 048
     Dates: start: 20120725, end: 20120728
  3. ESOMEPRAZOLE MAGNESIUM TRIHYDRATE [Concomitant]
     Dosage: 1 df= 1 unit
     Route: 048
     Dates: start: 20120101, end: 20120727
  4. ATENOLOL [Concomitant]
     Dosage: 1 df= 1 dose unit
     Route: 048
     Dates: start: 20120101, end: 20120727
  5. ALLOPURINOL [Concomitant]
     Dosage: 1 df= 1 dosage unit
     Route: 048
     Dates: start: 20120101, end: 20120727

REACTIONS (5)
  - Haematemesis [Unknown]
  - Asthenia [Unknown]
  - Drug interaction [Unknown]
  - Arthropod bite [None]
  - Inflammation [None]
